FAERS Safety Report 7360002-2 (Version None)
Quarter: 2011Q1

REPORT INFORMATION
  Report Type: 
  Country: None (occurrence: None)
  Receive Date: 20110317
  Receipt Date: 20110313
  Transmission Date: 20110831
  Serious: Yes (Other)
  Sender: FDA-Public Use
  Company Number: US-B.I. PHARMACEUTICALS,INC./RIDGEFIELD-2011-BP-07838BP

PATIENT
  Age: 69 Year
  Sex: Female

DRUGS (7)
  1. CARTIA XT [Concomitant]
     Indication: ATRIAL FIBRILLATION
  2. MULTIVITAMIN [Concomitant]
     Indication: SUPPLEMENTATION THERAPY
  3. PRADAXA [Suspect]
     Indication: ATRIAL FIBRILLATION
     Dosage: 300 MG
     Route: 048
     Dates: start: 20110101
  4. LISINOPRIL [Concomitant]
     Indication: HYPERTENSION
  5. AMIODARONE [Concomitant]
     Indication: ATRIAL FIBRILLATION
  6. DIGOXIN [Concomitant]
     Indication: ATRIAL FIBRILLATION
  7. REQUIP [Concomitant]
     Indication: RESTLESS LEGS SYNDROME

REACTIONS (1)
  - HAEMATURIA [None]
